FAERS Safety Report 13040247 (Version 1)
Quarter: 2016Q4

REPORT INFORMATION
  Report Type: Report from Study
  Country: None (occurrence: EC)
  Receive Date: 20161219
  Receipt Date: 20161219
  Transmission Date: 20170207
  Serious: Yes (Death, Hospitalization)
  Sender: FDA-Public Use
  Company Number: EC-ABBVIE-16P-047-1796131-00

PATIENT
  Age: 58 Year
  Sex: Female

DRUGS (1)
  1. ZEMPLAR [Suspect]
     Active Substance: PARICALCITOL
     Indication: HYPERPARATHYROIDISM SECONDARY
     Dosage: INTERDAY
     Route: 042
     Dates: start: 201411, end: 20160715

REACTIONS (2)
  - Myocardial infarction [Fatal]
  - Hypertension [Unknown]

NARRATIVE: CASE EVENT DATE: 20161127
